FAERS Safety Report 6038932-3 (Version None)
Quarter: 2009Q1

REPORT INFORMATION
  Report Type: 
  Country: None (occurrence: None)
  Receive Date: 20090115
  Receipt Date: 20090108
  Transmission Date: 20090719
  Serious: Yes (Other)
  Sender: FDA-Public Use
  Company Number: US-ASTRAZENECA-2009UW00691

PATIENT
  Age: 89 Year
  Sex: Female
  Weight: 59 kg

DRUGS (5)
  1. TOPROL-XL [Suspect]
     Route: 048
  2. ASPIRIN [Concomitant]
  3. CALCIUM [Concomitant]
     Indication: SUPPLEMENTATION THERAPY
  4. VITAMIN D [Concomitant]
     Dosage: IN WINTER
  5. REMERON [Concomitant]

REACTIONS (4)
  - FALL [None]
  - HIP FRACTURE [None]
  - SPINAL FRACTURE [None]
  - SUTURE INSERTION [None]
